FAERS Safety Report 9400378 (Version 1)
Quarter: 2013Q3

REPORT INFORMATION
  Report Type: Spontaneous
  Country: TR (occurrence: TR)
  Receive Date: 20130715
  Receipt Date: 20130715
  Transmission Date: 20140515
  Serious: Yes (Other)
  Sender: FDA-Public Use
  Company Number: TR-MYLANLABS-2013S1014900

PATIENT
  Age: 35 Year
  Sex: Male

DRUGS (3)
  1. SERTRALINE [Suspect]
     Indication: MAJOR DEPRESSION
     Dosage: 25 MG/D, THEN 50 MG/D
     Route: 065
  2. SERTRALINE [Interacting]
     Indication: MAJOR DEPRESSION
     Dosage: 50 MG/D
     Route: 065
  3. NEORAL [Interacting]
     Indication: IMMUNOSUPPRESSANT DRUG THERAPY
     Dosage: 100 MG/D
     Route: 065

REACTIONS (2)
  - Acute psychosis [Recovered/Resolved]
  - Drug interaction [Recovered/Resolved]
